FAERS Safety Report 16420900 (Version 4)
Quarter: 2019Q3

REPORT INFORMATION
  Report Type: Report from Study
  Country: AE (occurrence: AE)
  Receive Date: 20190612
  Receipt Date: 20190708
  Transmission Date: 20191004
  Serious: Yes (Other)
  Sender: FDA-Public Use
  Company Number: AE-JNJFOC-20190612292

PATIENT
  Age: 25 Year
  Sex: Male

DRUGS (3)
  1. GOLIMUMAB SOLUTION FOR INJECTION IN PRE-FILLED PEN [Suspect]
     Active Substance: GOLIMUMAB
     Route: 058
     Dates: end: 20190423
  2. CIMZIA [Suspect]
     Active Substance: CERTOLIZUMAB PEGOL
     Indication: CROHN^S DISEASE
     Route: 065
  3. GOLIMUMAB SOLUTION FOR INJECTION IN PRE-FILLED PEN [Suspect]
     Active Substance: GOLIMUMAB
     Indication: COLITIS ULCERATIVE
     Route: 058
     Dates: start: 20180611

REACTIONS (1)
  - Crohn^s disease [Unknown]
